FAERS Safety Report 7914620-0 (Version None)
Quarter: 2011Q4

REPORT INFORMATION
  Report Type: 
  Country: None (occurrence: None)
  Receive Date: 20111115
  Receipt Date: 20111107
  Transmission Date: 20120403
  Serious: Yes (Other)
  Sender: FDA-Public Use
  Company Number: PHHY2010JP41962

PATIENT
  Sex: Female

DRUGS (26)
  1. CLOZAPINE [Suspect]
     Dosage: 125 MG, QD
     Route: 048
     Dates: start: 20100312
  2. FLUNITRAZEPAM [Concomitant]
     Route: 048
  3. CLOZAPINE [Suspect]
     Indication: SCHIZOPHRENIA
     Dosage: 12.5 MG, QD
     Route: 048
     Dates: start: 20100301
  4. CLOZAPINE [Suspect]
     Dosage: 100 MG, QD
     Route: 048
     Dates: start: 20100310
  5. CLOZAPINE [Suspect]
     Dosage: 175 MG, QD
     Route: 048
     Dates: start: 20100323
  6. CLOZAPINE [Suspect]
     Dosage: 350 MG, QD
     Route: 047
     Dates: start: 20100412
  7. CLOZAPINE [Suspect]
     Dosage: 600 MG, QD
     Dates: start: 20100514
  8. CLOZAPINE [Suspect]
     Dosage: 25 MG, QD
     Route: 048
     Dates: start: 20100302
  9. CLOZAPINE [Suspect]
     Dosage: 500 MG, QD
     Route: 048
     Dates: start: 20100419
  10. BLONANSERIN [Concomitant]
     Route: 048
     Dates: start: 20100301, end: 20100304
  11. CLOZAPINE [Suspect]
     Dosage: 400 MG, QD
     Route: 047
     Dates: start: 20100414
  12. SEROQUEL [Concomitant]
     Route: 048
     Dates: start: 20100301, end: 20100414
  13. BIPERIDEN HYDROCHLORIDE TAB [Concomitant]
     Route: 048
     Dates: start: 20100302
  14. SENNOSIDE [Concomitant]
     Indication: CONSTIPATION
     Route: 048
  15. CLOZAPINE [Suspect]
     Dosage: 50 MG, QD
     Route: 048
     Dates: start: 20100305
  16. CLOZAPINE [Suspect]
     Dosage: 75 MG, QD
     Route: 048
     Dates: start: 20100308
  17. CLOZAPINE [Suspect]
     Dosage: 150 MG, QD
     Route: 048
     Dates: start: 20100315
  18. CLOZAPINE [Suspect]
     Dosage: 275 MG, QD
     Route: 048
     Dates: start: 20100407
  19. CLOZAPINE [Suspect]
     Dosage: 300 MG, QD
     Route: 048
     Dates: start: 20100409
  20. CLOZAPINE [Suspect]
     Dosage: 450 MG, QD
     Route: 048
     Dates: start: 20100416
  21. CLOZAPINE [Suspect]
     Dosage: 600 MG, QD
     Route: 048
     Dates: start: 20100426
  22. NITRAZEPAM [Concomitant]
     Route: 048
  23. CLOZAPINE [Suspect]
     Dosage: 525 MG, QD
     Route: 048
     Dates: start: 20100423
  24. CLOZAPINE [Suspect]
     Dosage: 200 MG, QD
     Route: 048
     Dates: start: 20100329
  25. CLOZAPINE [Suspect]
     Dosage: 225 MG, QD
     Route: 048
     Dates: start: 20100402
  26. CLOZAPINE [Suspect]
     Dosage: 250 MG, QD
     Route: 048
     Dates: start: 20100405

REACTIONS (8)
  - SUICIDE ATTEMPT [None]
  - DYSKINESIA [None]
  - ELECTROENCEPHALOGRAM ABNORMAL [None]
  - HEPATIC FUNCTION ABNORMAL [None]
  - INFLAMMATION [None]
  - PYREXIA [None]
  - SALIVARY HYPERSECRETION [None]
  - TREMOR [None]
